FAERS Safety Report 9277348 (Version 1)
Quarter: 2013Q2

REPORT INFORMATION
  Report Type: Spontaneous
  Country: US (occurrence: None)
  Receive Date: 20130503
  Receipt Date: 20130503
  Transmission Date: 20140414
  Serious: No
  Sender: FDA-Public Use
  Company Number: None

PATIENT
  Sex: Female

DRUGS (1)
  1. ESCITALOPRAM 10 MG [Suspect]
     Indication: ANXIETY
     Route: 048

REACTIONS (5)
  - Unevaluable event [None]
  - Anxiety [None]
  - Condition aggravated [None]
  - Drug effect decreased [None]
  - Product substitution issue [None]
